FAERS Safety Report 10103694 (Version 2)
Quarter: 2014Q2

REPORT INFORMATION
  Report Type: Spontaneous
  Country: US (occurrence: US)
  Receive Date: 20140424
  Receipt Date: 20140527
  Transmission Date: 20141212
  Serious: No
  Sender: FDA-Public Use
  Company Number: US-009507513-1404USA012892

PATIENT
  Age: 61 Year
  Sex: Male
  Weight: 70.3 kg

DRUGS (2)
  1. AFRIN NO DRIP EXTRA MOISTURIZING NASAL SPRAY [Suspect]
     Indication: PRODUCT USED FOR UNKNOWN INDICATION
     Dosage: UNK, UNKNOWN
     Route: 045
  2. LISINOPRIL [Concomitant]
     Indication: HYPERTENSION
     Dosage: 20 MG, UNKNOWN

REACTIONS (1)
  - Drug ineffective [Unknown]
